FAERS Safety Report 12237674 (Version 2)
Quarter: 2016Q3

REPORT INFORMATION
  Report Type: Spontaneous
  Country: SE (occurrence: SE)
  Receive Date: 20160405
  Receipt Date: 20160722
  Transmission Date: 20161109
  Serious: Yes (Other)
  Sender: FDA-Public Use
  Company Number: SE-ACTAVIS-2016-06993

PATIENT
  Age: 53 Year
  Sex: Male

DRUGS (1)
  1. ALPOXEN [Suspect]
     Active Substance: NAPROXEN
     Indication: INFLAMMATION
     Dosage: UNK UNK, UNKNOWN
     Route: 065

REACTIONS (1)
  - Gastric ulcer [Unknown]

NARRATIVE: CASE EVENT DATE: 20151010
